FAERS Safety Report 8358632-4 (Version None)
Quarter: 2012Q2

REPORT INFORMATION
  Report Type: 
  Country: None (occurrence: None)
  Receive Date: 20120514
  Receipt Date: 20120510
  Transmission Date: 20120825
  Serious: Yes (Life-Threatening, Hospitalization, Disabling)
  Sender: FDA-Public Use
  Company Number: GB-ROCHE-1021721

PATIENT
  Age: 56 Year
  Sex: Female

DRUGS (6)
  1. MABTHERA [Suspect]
     Indication: RHEUMATOID ARTHRITIS
     Route: 042
     Dates: start: 20100602, end: 20111123
  2. FOLIC ACID [Concomitant]
  3. HYDROXYCHLOROQUINE SULFATE [Concomitant]
  4. LEVOTHYROXINE SODIUM [Concomitant]
  5. METHOTREXATE [Concomitant]
     Indication: RHEUMATOID ARTHRITIS
     Route: 058
     Dates: start: 20100422
  6. CELECOXIB [Concomitant]
     Route: 048

REACTIONS (6)
  - VERTEBRAL ARTERY THROMBOSIS [None]
  - LOCKED-IN SYNDROME [None]
  - MALAISE [None]
  - BASILAR ARTERY THROMBOSIS [None]
  - THROMBOTIC STROKE [None]
  - SYNCOPE [None]
